FAERS Safety Report 16178244 (Version 1)
Quarter: 2019Q2

REPORT INFORMATION
  Report Type: Report from Study
  Country: None (occurrence: CA)
  Receive Date: 20190410
  Receipt Date: 20190410
  Transmission Date: 20190711
  Serious: Yes (Hospitalization, Other)
  Sender: FDA-Public Use
  Company Number: CA-ABBVIE-19S-028-2735666-00

PATIENT
  Age: 89 Year
  Sex: Male
  Weight: 90.8 kg

DRUGS (2)
  1. LUPRON DEPOT [Suspect]
     Active Substance: LEUPROLIDE ACETATE
     Indication: PROSTATE CANCER
     Route: 058
     Dates: start: 20120728
  2. LUPRON DEPOT [Suspect]
     Active Substance: LEUPROLIDE ACETATE
     Route: 058

REACTIONS (3)
  - Prostatic specific antigen increased [Recovering/Resolving]
  - Cataract [Recovering/Resolving]
  - Implantable defibrillator insertion [Recovering/Resolving]

NARRATIVE: CASE EVENT DATE: 20181231
